FAERS Safety Report 6908485-3 (Version None)
Quarter: 2010Q3

REPORT INFORMATION
  Report Type: 
  Country: None (occurrence: None)
  Receive Date: 20100805
  Receipt Date: 20100726
  Transmission Date: 20110219
  Serious: Yes (Hospitalization)
  Sender: FDA-Public Use
  Company Number: IE-PFIZER INC-2010093186

PATIENT
  Age: 67 Year
  Sex: Female

DRUGS (13)
  1. ZITHROMAX [Suspect]
     Indication: RESPIRATORY TRACT INFECTION
     Dosage: 500 MG, UNK
     Route: 048
  2. ACETYLSALICYLIC ACID [Concomitant]
  3. XANAX [Concomitant]
  4. RAMIPRIL [Concomitant]
  5. PANTOPRAZOLE [Concomitant]
  6. ELTROXIN [Concomitant]
  7. ATORVASTATIN [Concomitant]
  8. IRBESARTAN [Concomitant]
  9. BECOTIDE [Concomitant]
  10. SALBUTAMOL [Concomitant]
  11. STILNOCT [Concomitant]
  12. LEXAPRO [Concomitant]
  13. CALCICHEW [Concomitant]
     Dosage: 500 MG, UNK

REACTIONS (4)
  - PALLOR [None]
  - PALMAR ERYTHEMA [None]
  - RASH PAPULAR [None]
  - STEVENS-JOHNSON SYNDROME [None]
